FAERS Safety Report 8548004-1 (Version None)
Quarter: 2012Q3

REPORT INFORMATION
  Report Type: 
  Country: None (occurrence: None)
  Receive Date: 20120729
  Receipt Date: 20120719
  Transmission Date: 20120928
  Serious: Yes (Other)
  Sender: FDA-Public Use
  Company Number: US-009507513-1207USA009014

PATIENT

DRUGS (3)
  1. SPIRIVA [Concomitant]
     Dosage: UNK, QD
  2. DULERA [Suspect]
     Dosage: 1 DF, QD
  3. DULERA [Suspect]
     Indication: ASTHMA
     Dosage: 2 DF, BID
     Dates: start: 20120705

REACTIONS (2)
  - APHONIA [None]
  - DYSPHONIA [None]
